FAERS Safety Report 7226499-3 (Version None)
Quarter: 2011Q1

REPORT INFORMATION
  Report Type: 
  Country: None (occurrence: None)
  Receive Date: 20110105
  Receipt Date: 20101222
  Transmission Date: 20110831
  Serious: Yes (Hospitalization)
  Sender: FDA-Public Use
  Company Number: 2010AL000142

PATIENT
  Age: 50 Year
  Sex: Male
  Weight: 110 kg

DRUGS (12)
  1. VINCRISTINE [Concomitant]
  2. APREPITANT [Concomitant]
  3. LEUCOVORIN [Concomitant]
  4. DEXAMETHASONE [Concomitant]
  5. FOLOTYN [Suspect]
     Indication: T-CELL LYMPHOMA
     Dosage: 40 MG; IV
     Route: 042
     Dates: start: 20101213
  6. DOXORUBICIN [Concomitant]
  7. CYTARABINE [Concomitant]
  8. METHYLPREDNISOLONE [Concomitant]
  9. CYCLOPHOSPHAMIDE [Concomitant]
  10. METHOTREXATE [Concomitant]
  11. MESNA [Concomitant]
  12. ONDANSETRON [Concomitant]

REACTIONS (2)
  - RESPIRATORY FAILURE [None]
  - NERVE INJURY [None]
